FAERS Safety Report 17767253 (Version 1)
Quarter: 2020Q2

REPORT INFORMATION
  Report Type: Spontaneous
  Country: GB (occurrence: GB)
  Receive Date: 20200511
  Receipt Date: 20200511
  Transmission Date: 20200714
  Serious: Yes (Other)
  Sender: FDA-Public Use
  Company Number: GB-ELI_LILLY_AND_COMPANY-GB202004012472

PATIENT
  Age: 46 Year
  Sex: Male

DRUGS (3)
  1. LANSOPRAZOLE. [Concomitant]
     Active Substance: LANSOPRAZOLE
     Indication: PRODUCT USED FOR UNKNOWN INDICATION
     Dosage: UNK UNK, UNKNOWN
     Route: 065
  2. OLUMIANT [Suspect]
     Active Substance: BARICITINIB
     Indication: PSORIATIC ARTHROPATHY
     Dosage: 4 MG, DAILY
     Route: 065
     Dates: start: 201906, end: 201910
  3. ETORICOXIB. [Concomitant]
     Active Substance: ETORICOXIB
     Indication: PRODUCT USED FOR UNKNOWN INDICATION
     Dosage: UNK UNK, UNKNOWN
     Route: 065

REACTIONS (4)
  - Toothache [Unknown]
  - Lower respiratory tract infection [Unknown]
  - Gingival pain [Unknown]
  - Nausea [Unknown]
